FAERS Safety Report 7423198-X (Version None)
Quarter: 2011Q2

REPORT INFORMATION
  Report Type: 
  Country: None (occurrence: None)
  Receive Date: 20110419
  Receipt Date: 20100709
  Transmission Date: 20111010
  Serious: Yes (Other)
  Sender: FDA-Public Use
  Company Number: US-BAYER-200943712NA

PATIENT
  Age: 70 Year
  Sex: Male
  Weight: 76 kg

DRUGS (25)
  1. MAGNEVIST [Suspect]
     Dosage: UNK
     Dates: start: 20050126, end: 20050126
  2. EPOGEN [Concomitant]
     Indication: ANAEMIA
  3. IRON [Concomitant]
  4. SEVELAMER [Concomitant]
  5. MAGNEVIST [Suspect]
     Dosage: UNK
     Dates: start: 20010122, end: 20010122
  6. NEPHROCAPS [Concomitant]
  7. CALCIUM CARBONATE W/VITAMIN D NOS [Concomitant]
  8. MAGNEVIST [Suspect]
     Indication: ANGIOGRAM
     Dosage: UNK
     Dates: start: 19990225, end: 19990225
  9. ZEMPLAR [Concomitant]
  10. AMIODARONE [Concomitant]
     Indication: HEART RATE IRREGULAR
  11. MAGNEVIST [Suspect]
     Indication: NUCLEAR MAGNETIC RESONANCE IMAGING
     Dosage: 18 ML, ONCE
     Route: 042
     Dates: start: 19991215, end: 19991215
  12. MAGNEVIST [Suspect]
     Dosage: 20 ML, ONCE
     Dates: start: 20010920, end: 20010920
  13. MAGNEVIST [Suspect]
     Dosage: UNK
     Dates: start: 20011101, end: 20011101
  14. ROCALTROL [Concomitant]
  15. LOPRESSOR [Concomitant]
  16. VERAPAMIL [Concomitant]
  17. MAGNEVIST [Suspect]
     Dosage: UNK
     Dates: start: 20021105, end: 20021105
  18. FERRLECIT [Concomitant]
  19. HECTOROL [Concomitant]
  20. MAGNEVIST [Suspect]
     Route: 042
     Dates: start: 20010109, end: 20010109
  21. MAGNEVIST [Suspect]
     Dosage: UNK
     Dates: start: 20030218, end: 20030218
  22. PHOSLO [Concomitant]
  23. HYPAQUE [MEGLUMINE AMIDOTRIZOATE] [Concomitant]
     Indication: MUSCULOSKELETAL PAIN
  24. HYPAQUE [MEGLUMINE AMIDOTRIZOATE] [Concomitant]
     Indication: ARTHROGRAM
  25. IRON SUPPLEMENT [Concomitant]
     Dosage: 65 MG, UNK

REACTIONS (26)
  - PAIN IN EXTREMITY [None]
  - SKIN DISCOLOURATION [None]
  - RASH PAPULAR [None]
  - HYPERKERATOSIS [None]
  - MUSCULOSKELETAL STIFFNESS [None]
  - SKIN TIGHTNESS [None]
  - SKIN DISORDER [None]
  - SKIN INDURATION [None]
  - OEDEMA PERIPHERAL [None]
  - JOINT CONTRACTURE [None]
  - EYE SWELLING [None]
  - SKIN HYPERPIGMENTATION [None]
  - NEPHROGENIC SYSTEMIC FIBROSIS [None]
  - PAIN [None]
  - ERYTHEMA [None]
  - SKIN PLAQUE [None]
  - SKIN HYPERTROPHY [None]
  - PRURITUS [None]
  - PAPULE [None]
  - JOINT RANGE OF MOTION DECREASED [None]
  - FATIGUE [None]
  - PARAESTHESIA [None]
  - HYPOAESTHESIA [None]
  - VIITH NERVE PARALYSIS [None]
  - ARTHRALGIA [None]
  - EMOTIONAL DISTRESS [None]
